FAERS Safety Report 9280975 (Version 10)
Quarter: 2013Q3

REPORT INFORMATION
  Report Type: Report from Study
  Country: RU (occurrence: RU)
  Receive Date: 20130509
  Receipt Date: 20130828
  Transmission Date: 20140515
  Serious: Yes (Life-Threatening, Hospitalization)
  Sender: FDA-Public Use
  Company Number: RU-TEVA-404082USA

PATIENT
  Age: 50 Year
  Sex: Male
  Weight: 96.2 kg

DRUGS (18)
  1. BENDAMUSTINE [Suspect]
     Indication: CHRONIC LYMPHOCYTIC LEUKAEMIA
     Dosage: UID/QD
     Route: 042
     Dates: start: 20130409
  2. BENDAMUSTINE [Suspect]
     Indication: LYMPHOCYTIC LYMPHOMA
     Dosage: UID/QD
     Route: 042
     Dates: start: 20130410
  3. RITUXIMAB [Suspect]
     Indication: CHRONIC LYMPHOCYTIC LEUKAEMIA
     Dosage: UID/QD
     Route: 042
     Dates: start: 20130408
  4. RITUXIMAB [Suspect]
     Indication: LYMPHOCYTIC LYMPHOMA
  5. IBRUTINIB [Suspect]
     Indication: CHRONIC LYMPHOCYTIC LEUKAEMIA
     Dosage: 420 MILLIGRAM DAILY;
     Route: 048
     Dates: start: 20130409
  6. IBRUTINIB [Suspect]
     Indication: LYMPHOCYTIC LYMPHOMA
     Dosage: 420 MILLIGRAM DAILY;
     Route: 048
     Dates: start: 20130429
  7. ASPIRIN [Concomitant]
  8. IMMUNOGLOBULIN^S (NOS) [Concomitant]
  9. OXYGEN [Concomitant]
  10. UNSPECIFIED ANTIVIRALS [Concomitant]
  11. UNSPECIFIED GASTRO PROTECTIVE AGENTS (ALIMENTARY TRACT AND METABOLISM) [Concomitant]
  12. UNSPECIFIED ANTIBIOTICS [Concomitant]
  13. UNSPECIFIED ANTICHOLINERGICS [Concomitant]
  14. ACE INHIBITOR NOS [Concomitant]
  15. UNSPECIFIED CALCIUM CHANNEL BLOCKERS [Concomitant]
  16. UNSPECIFIED BETA-BLOCKING AGENTS [Concomitant]
  17. UNSPECIFIED ANTITHROMBOTIC AGENTS [Concomitant]
  18. UNSPECIFIED MUCOLYTICS [Concomitant]

REACTIONS (3)
  - Carditis [Not Recovered/Not Resolved]
  - Atrioventricular block [Recovered/Resolved]
  - Viral infection [Recovered/Resolved]
